FAERS Safety Report 22539763 (Version 1)
Quarter: 2023Q2

REPORT INFORMATION
  Report Type: Spontaneous
  Country: US (occurrence: US)
  Receive Date: 20230609
  Receipt Date: 20230609
  Transmission Date: 20230722
  Serious: Yes (Hospitalization, Other)
  Sender: FDA-Public Use
  Company Number: US-drreddys-SPO/USA/23/0166345

PATIENT
  Age: 68 Year
  Sex: Male

DRUGS (3)
  1. NAPROXEN [Suspect]
     Active Substance: NAPROXEN
     Indication: Product used for unknown indication
     Dosage: UP TO 20 TABLETS OF NAPROXEN A DAY
  2. CEPHALEXIN [Suspect]
     Active Substance: CEPHALEXIN
     Indication: Urinary tract infection
  3. ALBUTEROL [Concomitant]
     Active Substance: ALBUTEROL
     Indication: Product used for unknown indication

REACTIONS (3)
  - Acute hepatic failure [Recovered/Resolved]
  - Autoimmune hepatitis [Recovered/Resolved]
  - Drug-induced liver injury [Recovered/Resolved]
